FAERS Safety Report 9614076 (Version 3)
Quarter: 2014Q1

REPORT INFORMATION
  Report Type: Report from Study
  Country: CA (occurrence: CA)
  Receive Date: 20131011
  Receipt Date: 20140205
  Transmission Date: 20141002
  Serious: Yes (Other)
  Sender: FDA-Public Use
  Company Number: CA-ROCHE-1287103

PATIENT
  Sex: Male
  Weight: 106.6 kg

DRUGS (5)
  1. ACTEMRA [Suspect]
     Indication: RHEUMATOID ARTHRITIS
     Dosage: DOSE INTERRUPTED
     Route: 042
     Dates: start: 20120301
  2. ACTEMRA [Suspect]
     Dosage: RESTARTED
     Route: 042
  3. EFFEXOR [Concomitant]
  4. CLONAZEPAM [Concomitant]
  5. METHOTREXATE [Concomitant]

REACTIONS (2)
  - Thermal burn [Not Recovered/Not Resolved]
  - Carpal tunnel syndrome [Unknown]
